FAERS Safety Report 9283272 (Version 2)
Quarter: 2013Q4

REPORT INFORMATION
  Report Type: Spontaneous
  Country: US (occurrence: US)
  Receive Date: 20130510
  Receipt Date: 20131023
  Transmission Date: 20140711
  Serious: Yes (Death)
  Sender: FDA-Public Use
  Company Number: US-GLAXOSMITHKLINE-A0993741A

PATIENT
  Age: 48 Year
  Sex: Female
  Weight: 55.5 kg

DRUGS (9)
  1. TYKERB [Suspect]
     Indication: PRODUCT USED FOR UNKNOWN INDICATION
     Dosage: 250MG PER DAY
     Route: 048
  2. ACETAZOLAMIDE [Concomitant]
     Dosage: 500MG UNKNOWN
  3. ANTI-DIARRHEAL [Concomitant]
     Dosage: 2MG UNKNOWN
  4. WELCHOL [Concomitant]
     Dosage: 625MG UNKNOWN
  5. ZYRTEC [Concomitant]
     Dosage: 10MG UNKNOWN
  6. HYDROCODONE/ APAP [Concomitant]
     Route: 065
  7. ACETAZOLAMIDE [Concomitant]
     Dosage: 125MG UNKNOWN
     Route: 065
  8. EXEMESTANE [Concomitant]
     Route: 065
  9. AFINITOR [Concomitant]

REACTIONS (6)
  - Lung disorder [Unknown]
  - Arthralgia [Unknown]
  - Dyspnoea [Unknown]
  - Weight decreased [Unknown]
  - Constipation [Unknown]
  - Death [Fatal]
